FAERS Safety Report 14980922 (Version 2)
Quarter: 2018Q3

REPORT INFORMATION
  Report Type: Spontaneous
  Country: None (occurrence: US)
  Receive Date: 20180606
  Receipt Date: 20180730
  Transmission Date: 20181010
  Serious: Yes (Other)
  Sender: FDA-Public Use
  Company Number: US-MEDAC PHARMA, INC.-2049090

PATIENT
  Age: 49 Year
  Sex: Female

DRUGS (8)
  1. ENBREL [Suspect]
     Active Substance: ETANERCEPT
     Dates: start: 201701, end: 201703
  2. DICLOFENAC SODIUM. [Concomitant]
     Active Substance: DICLOFENAC SODIUM
  3. MELOXICAM. [Suspect]
     Active Substance: MELOXICAM
  4. XELJANZ XR [Concomitant]
     Active Substance: TOFACITINIB CITRATE
  5. SULFASALAZINE. [Suspect]
     Active Substance: SULFASALAZINE
  6. METHOTREXATE. [Suspect]
     Active Substance: METHOTREXATE
  7. RASUVO [Suspect]
     Active Substance: METHOTREXATE SODIUM
     Indication: RHEUMATOID ARTHRITIS
  8. HUMIRA [Suspect]
     Active Substance: ADALIMUMAB
     Route: 058
     Dates: start: 201703, end: 201804

REACTIONS (5)
  - Contraindicated drug prescribed [Unknown]
  - Tooth abscess [Unknown]
  - Rheumatoid arthritis [Unknown]
  - Product use complaint [Unknown]
  - Subcutaneous abscess [Unknown]
